FAERS Safety Report 17328138 (Version 1)
Quarter: 2020Q1

REPORT INFORMATION
  Report Type: Spontaneous
  Country: FR (occurrence: FR)
  Receive Date: 20200127
  Receipt Date: 20200127
  Transmission Date: 20200409
  Serious: Yes (Other)
  Sender: FDA-Public Use
  Company Number: FR-MYLANLABS-2020M1009304

PATIENT
  Age: 60 Year
  Sex: Female

DRUGS (3)
  1. LORAZEPAM. [Suspect]
     Active Substance: LORAZEPAM
     Indication: DELIRIUM
     Dosage: 5.5 MILLIGRAM, QD
     Route: 048
     Dates: start: 20190808
  2. LOXAPAC                            /00401801/ [Suspect]
     Active Substance: LOXAPINE
     Indication: DELIRIUM
     Dosage: 90 MILLIGRAM, QD
     Route: 048
     Dates: start: 20190808
  3. RISPERDAL [Suspect]
     Active Substance: RISPERIDONE
     Indication: DELIRIUM
     Dosage: 4 MILLIGRAM, QD
     Route: 048
     Dates: start: 20180808

REACTIONS (1)
  - Hepatocellular injury [Recovered/Resolved]

NARRATIVE: CASE EVENT DATE: 20190819
